FAERS Safety Report 8999246 (Version 2)
Quarter: 2013Q3

REPORT INFORMATION
  Report Type: Spontaneous
  Country: US (occurrence: US)
  Receive Date: 20130103
  Receipt Date: 20130904
  Transmission Date: 20140515
  Serious: Yes (Other)
  Sender: FDA-Public Use
  Company Number: US-JNJFOC-20121106792

PATIENT
  Age: 43 Year
  Sex: Female

DRUGS (8)
  1. TOPAMAX [Suspect]
     Indication: MIGRAINE
     Route: 048
     Dates: start: 20080506, end: 200810
  2. TOPAMAX [Suspect]
     Indication: MIGRAINE
     Route: 048
     Dates: start: 200610, end: 200710
  3. ZOMIG [Suspect]
     Indication: MIGRAINE
     Route: 065
  4. PROPOXYPHENE NAPSYLATE/ ACETAMINOPHEN [Suspect]
     Indication: ENDODONTIC PROCEDURE
     Route: 065
  5. PROPOXYPHENE NAPSYLATE/ ACETAMINOPHEN [Suspect]
     Indication: NEPHROLITHIASIS
     Route: 065
  6. PROPOXYPHENE NAPSYLATE/ ACETAMINOPHEN [Suspect]
     Indication: BACK PAIN
     Route: 065
  7. ALDOMET [Suspect]
     Indication: HYPERTENSION
     Route: 065
  8. AMPICILLIN [Suspect]
     Indication: URINARY TRACT INFECTION
     Route: 065

REACTIONS (4)
  - Emotional disorder [Unknown]
  - Premature labour [Recovered/Resolved]
  - Polyhydramnios [Recovered/Resolved]
  - Exposure during pregnancy [Recovered/Resolved]
